FAERS Safety Report 21844117 (Version 1)
Quarter: 2023Q1

REPORT INFORMATION
  Report Type: Report from Study
  Country: IT (occurrence: IT)
  Receive Date: 20230110
  Receipt Date: 20230110
  Transmission Date: 20230417
  Serious: Yes (Other)
  Sender: FDA-Public Use
  Company Number: None

PATIENT
  Age: 19 Year
  Sex: Female

DRUGS (4)
  1. XANAX [Suspect]
     Active Substance: ALPRAZOLAM
     Indication: Product used for unknown indication
     Dosage: 10 UNIT OF MEASURE: DOSING UNIT
     Route: 065
  2. QUETIAPINE [Suspect]
     Active Substance: QUETIAPINE
     Indication: Product used for unknown indication
     Dosage: 10 UNIT OF MEASURE: DOSING UNIT
     Route: 065
  3. LEVOMEPROMAZINE MALEATE [Suspect]
     Active Substance: LEVOMEPROMAZINE MALEATE
     Indication: Product used for unknown indication
     Dosage: 10UNIT OF MEASURE: DOSING UNIT
     Route: 065
  4. HALCION [Suspect]
     Active Substance: TRIAZOLAM
     Indication: Product used for unknown indication
     Dosage: 10 UNIT OF MEASURE: DOSING UNIT
     Route: 065

REACTIONS (1)
  - Intentional self-injury [Recovering/Resolving]

NARRATIVE: CASE EVENT DATE: 20220823
